FAERS Safety Report 18073466 (Version 1)
Quarter: 2020Q3

REPORT INFORMATION
  Report Type: Spontaneous
  Country: US (occurrence: US)
  Receive Date: 20200727
  Receipt Date: 20200727
  Transmission Date: 20201103
  Serious: Yes (Death, Hospitalization, Other)
  Sender: FDA-Public Use
  Company Number: US-CASPER PHARMA LLC-2020CAS000361

PATIENT
  Age: 45 Year
  Sex: Male

DRUGS (2)
  1. AZATHIOPRINE. [Suspect]
     Active Substance: AZATHIOPRINE
     Indication: KIDNEY TRANSPLANT REJECTION
     Dosage: 50 MILLIGRAM, QD
     Route: 065
  2. PREDNISONE. [Concomitant]
     Active Substance: PREDNISONE
     Indication: KIDNEY TRANSPLANT REJECTION
     Dosage: 30 MILLIGRAM, EVERY OTHER DAY
     Route: 065

REACTIONS (2)
  - Encephalopathy [Fatal]
  - Nodular regenerative hyperplasia [Fatal]
